FAERS Safety Report 7433792-8 (Version None)
Quarter: 2011Q2

REPORT INFORMATION
  Report Type: 
  Country: None (occurrence: None)
  Receive Date: 20110425
  Receipt Date: 20110413
  Transmission Date: 20111010
  Serious: No
  Sender: FDA-Public Use
  Company Number: US-BIOGENIDEC-2010BI038730

PATIENT
  Sex: Female

DRUGS (4)
  1. AVONEX [Concomitant]
     Indication: MULTIPLE SCLEROSIS
     Route: 030
     Dates: start: 20040301
  2. AVONEX [Concomitant]
     Route: 030
  3. AMPYRA [Concomitant]
     Dates: start: 20100917
  4. TYSABRI [Suspect]
     Indication: MULTIPLE SCLEROSIS
     Route: 042
     Dates: start: 20101001

REACTIONS (10)
  - HEADACHE [None]
  - FATIGUE [None]
  - MENTAL IMPAIRMENT [None]
  - SINUSITIS [None]
  - MALAISE [None]
  - URINARY TRACT INFECTION [None]
  - NASOPHARYNGITIS [None]
  - DRUG INEFFECTIVE [None]
  - CENTRAL VENOUS CATHETERISATION [None]
  - FLUSHING [None]
